FAERS Safety Report 8506592-5 (Version None)
Quarter: 2012Q3

REPORT INFORMATION
  Report Type: 
  Country: None (occurrence: None)
  Receive Date: 20120712
  Receipt Date: 20120710
  Transmission Date: 20120928
  Serious: Yes (Hospitalization)
  Sender: FDA-Public Use
  Company Number: IT-BRISTOL-MYERS SQUIBB COMPANY-16681686

PATIENT
  Age: 74 Year
  Sex: Female

DRUGS (4)
  1. ASPIRIN [Concomitant]
  2. IRBESARTAN AND HYDROCHLOROTHIAZIDE [Suspect]
     Indication: PALPITATIONS
     Dosage: 1 DF=2 DOSAGE UNIT;27MAY-27MAY12 1 DOSAGE UNIT:01MAY08-26MAY2012
     Route: 048
     Dates: start: 20080501, end: 20120527
  3. IRBESARTAN AND HYDROCHLOROTHIAZIDE [Suspect]
     Indication: HYPERTENSION
     Dosage: 1 DF=2 DOSAGE UNIT;27MAY-27MAY12 1 DOSAGE UNIT:01MAY08-26MAY2012
     Route: 048
     Dates: start: 20080501, end: 20120527
  4. SIMVASTATIN [Concomitant]

REACTIONS (3)
  - HYPOTENSION [None]
  - INCORRECT DOSE ADMINISTERED [None]
  - DRUG ADMINISTRATION ERROR [None]
